FAERS Safety Report 4281532-6 (Version None)
Quarter: 2004Q1

REPORT INFORMATION
  Report Type: 
  Country: None (occurrence: None)
  Receive Date: 20040108
  Receipt Date: 20030611
  Transmission Date: 20041129
  Serious: Yes (Hospitalization)
  Sender: FDA-Public Use
  Company Number: HQWYE605113JUN03

PATIENT
  Age: 53 Year
  Sex: Female

DRUGS (2)
  1. PREMPRO [Suspect]
     Indication: MENSTRUATION IRREGULAR
     Dosage: 0.625/5.0MG, ORAL
     Route: 048
     Dates: start: 20010101, end: 20030301
  2. GLUCOTROL [Concomitant]

REACTIONS (1)
  - PULMONARY EMBOLISM [None]
